FAERS Safety Report 26035451 (Version 4)
Quarter: 2025Q4

REPORT INFORMATION
  Report Type: Spontaneous
  Country: RU (occurrence: RU)
  Receive Date: 20251112
  Receipt Date: 20251210
  Transmission Date: 20260117
  Serious: Yes (Death, Hospitalization)
  Sender: EISAI
  Company Number: RU-Eisai-EC-2025-199732

PATIENT
  Age: 48 Year
  Sex: Female
  Weight: 39 kg

DRUGS (2)
  1. LENVIMA [Suspect]
     Active Substance: LENVATINIB
     Indication: Uterine cancer
     Route: 048
     Dates: start: 20250711, end: 202511
  2. PEMBROLIZUMAB [Concomitant]
     Active Substance: PEMBROLIZUMAB
     Indication: Uterine cancer
     Route: 042
     Dates: start: 20250711, end: 202511

REACTIONS (1)
  - Peritonitis [Fatal]

NARRATIVE: CASE EVENT DATE: 20251104
